FAERS Safety Report 10003470 (Version 2)
Quarter: 2014Q1

REPORT INFORMATION
  Report Type: Spontaneous
  Country: US (occurrence: US)
  Receive Date: 20140312
  Receipt Date: 20140312
  Transmission Date: 20141002
  Serious: No
  Sender: FDA-Public Use
  Company Number: US-GILEAD-2012-0059146

PATIENT
  Sex: Female

DRUGS (16)
  1. LETAIRIS [Suspect]
     Indication: PULMONARY ARTERIAL HYPERTENSION
     Dosage: 10 MG, UNK
     Route: 048
     Dates: start: 20111128
  2. LETAIRIS [Suspect]
     Indication: PULMONARY FIBROSIS
  3. SILDENAFIL [Concomitant]
  4. FUROSEMIDE [Concomitant]
  5. POTASSIUM CHLORIDE [Concomitant]
  6. GABAPENTIN [Concomitant]
  7. TRAMADOL [Concomitant]
  8. FENTANYL [Concomitant]
  9. ACETYLCYSTEINE [Concomitant]
  10. WARFARIN [Concomitant]
  11. IPRATROPIUM BROMIDE [Concomitant]
  12. ALENDRONATE [Concomitant]
  13. BENZONATATE [Concomitant]
  14. PRAVASTATIN [Concomitant]
  15. ATENOLOL [Concomitant]
  16. CHOLECALCIFEROL [Concomitant]

REACTIONS (2)
  - Pulmonary arterial hypertension [Unknown]
  - Drug ineffective [Unknown]
